FAERS Safety Report 23687543 (Version 1)
Quarter: 2024Q1

REPORT INFORMATION
  Report Type: Spontaneous
  Country: FR (occurrence: FR)
  Receive Date: 20240329
  Receipt Date: 20240329
  Transmission Date: 20240410
  Serious: Yes (Hospitalization)
  Sender: FDA-Public Use
  Company Number: None

PATIENT
  Age: 27 Year
  Sex: Female
  Weight: 60 kg

DRUGS (11)
  1. ACETAMINOPHEN [Suspect]
     Active Substance: ACETAMINOPHEN
     Indication: Anaesthesia
     Route: 042
     Dates: start: 20231221, end: 20231221
  2. PROPOFOL [Suspect]
     Active Substance: PROPOFOL
     Indication: Anaesthesia
     Route: 042
     Dates: start: 20231221, end: 20231221
  3. ATROPINE SULFATE [Suspect]
     Active Substance: ATROPINE SULFATE
     Indication: Anaesthesia
     Dosage: ROA: INTRAVENOUS USE
     Dates: start: 20231221, end: 20231221
  4. SUFENTANIL [Suspect]
     Active Substance: SUFENTANIL
     Indication: Anaesthesia
     Dosage: ROA: INTRAVENOUS
     Dates: start: 20231221, end: 20231221
  5. KETOPROFEN [Suspect]
     Active Substance: KETOPROFEN
     Indication: Anaesthesia
     Dosage: ROA: INTRAVENOUS
     Dates: start: 20231221, end: 20231221
  6. ACUPAN [Suspect]
     Active Substance: NEFOPAM HYDROCHLORIDE
     Indication: Anaesthesia
     Dosage: ROA: INTRAVENOUS
     Dates: start: 20231221, end: 20231221
  7. EPHEDRINE [Suspect]
     Active Substance: EPHEDRINE
     Indication: Anaesthesia
     Dosage: ROA: INTRAVENOUS
     Dates: start: 20231221, end: 20231221
  8. ATRACURIUM [Suspect]
     Active Substance: ATRACURIUM
     Indication: Anaesthesia
     Dosage: ROA: INTRAVENOUS USE
     Dates: start: 20231221, end: 20231221
  9. NEOSTIGMINE BROMIDE [Suspect]
     Active Substance: NEOSTIGMINE BROMIDE
     Indication: Anaesthesia
     Dosage: ROA: INTRAVENOUS USE
     Dates: start: 20231221, end: 20231221
  10. KETAMINE [Suspect]
     Active Substance: KETAMINE
     Indication: Anaesthesia
     Dosage: ROA: INTRAVENOUS
     Dates: start: 20231221, end: 20231221
  11. DEXAMETHASONE [Suspect]
     Active Substance: DEXAMETHASONE
     Indication: Anaesthesia
     Dosage: ROA: INTRAVENOUS
     Dates: start: 20231221, end: 20231221

REACTIONS (1)
  - Chorea [Recovered/Resolved]

NARRATIVE: CASE EVENT DATE: 20231221
